FAERS Safety Report 15000253 (Version 5)
Quarter: 2018Q4

REPORT INFORMATION
  Report Type: Spontaneous
  Country: CA (occurrence: CA)
  Receive Date: 20180612
  Receipt Date: 20181102
  Transmission Date: 20190204
  Serious: Yes (Hospitalization, Other)
  Sender: FDA-Public Use
  Company Number: CA-GLAXOSMITHKLINE-CA2018GSK100375

PATIENT
  Sex: Female
  Weight: 124 kg

DRUGS (3)
  1. BENLYSTA [Suspect]
     Active Substance: BELIMUMAB
     Dosage: 1000 MG, UNK
     Route: 042
     Dates: end: 20181026
  2. BENLYSTA [Suspect]
     Active Substance: BELIMUMAB
     Indication: SYSTEMIC LUPUS ERYTHEMATOSUS
     Dosage: 1000 MG, UNK
     Route: 042
  3. BENLYSTA [Suspect]
     Active Substance: BELIMUMAB
     Dosage: 1000 MG, UNK
     Route: 058
     Dates: start: 20181026

REACTIONS (9)
  - Wound infection [Unknown]
  - Mass [Unknown]
  - Intestinal obstruction [Unknown]
  - Skin cancer [Not Recovered/Not Resolved]
  - Burning sensation [Unknown]
  - Headache [Unknown]
  - Skin wound [Not Recovered/Not Resolved]
  - Pain [Unknown]
  - Depressed mood [Unknown]
